FAERS Safety Report 22134985 (Version 1)
Quarter: 2023Q1

REPORT INFORMATION
  Report Type: Spontaneous
  Country: US (occurrence: None)
  Receive Date: 20230323
  Receipt Date: 20230323
  Transmission Date: 20230417
  Serious: Yes (Other)
  Sender: FDA-Public Use
  Company Number: None

PATIENT
  Age: 54 Year
  Sex: Female
  Weight: 75.6 kg

DRUGS (11)
  1. QULIPTA [Suspect]
     Active Substance: ATOGEPANT
     Indication: Migraine
     Dosage: FREQUENCY : AT BEDTIME;?
     Route: 048
     Dates: start: 20230227, end: 20230317
  2. SUMATRIPTAN [Concomitant]
     Active Substance: SUMATRIPTAN
  3. MAXALT [Concomitant]
     Active Substance: RIZATRIPTAN BENZOATE
  4. LINZESS [Concomitant]
     Active Substance: LINACLOTIDE
  5. WELLBUTRIN [Concomitant]
     Active Substance: BUPROPION HYDROCHLORIDE
  6. PREVACID [Concomitant]
     Active Substance: LANSOPRAZOLE
  7. PEPCID [Concomitant]
     Active Substance: FAMOTIDINE
  8. MAGNESIUM [Concomitant]
     Active Substance: MAGNESIUM
  9. viviscal [Concomitant]
  10. PROBIOTICS NOS [Concomitant]
     Active Substance: PROBIOTICS NOS
  11. MELATONIN [Concomitant]
     Active Substance: MELATONIN

REACTIONS (7)
  - Rash [None]
  - Chills [None]
  - Pyrexia [None]
  - Palpitations [None]
  - Fatigue [None]
  - Nausea [None]
  - Therapy cessation [None]

NARRATIVE: CASE EVENT DATE: 20230308
